FAERS Safety Report 6601312-3 (Version None)
Quarter: 2010Q1

REPORT INFORMATION
  Report Type: 
  Country: None (occurrence: None)
  Receive Date: 20100225
  Receipt Date: 20100212
  Transmission Date: 20100710
  Serious: Yes (Other)
  Sender: FDA-Public Use
  Company Number: JP-PFIZER INC-2010011830

PATIENT
  Age: 18 Year
  Sex: Male

DRUGS (6)
  1. ZOLOFT [Interacting]
     Indication: DEPRESSION
     Dosage: 75 MG, 1X/DAY
     Route: 048
     Dates: start: 20081115, end: 20100117
  2. TOLEDOMIN [Suspect]
     Dosage: 37.5 MG, 2X/DAY
     Route: 048
     Dates: start: 20081115
  3. TALION [Interacting]
     Dosage: 20 MG/DAY
     Route: 048
     Dates: start: 20090207
  4. ONON [Interacting]
     Dosage: 225 MG/DAY
     Route: 048
     Dates: start: 20090207
  5. DEPAS [Concomitant]
     Dosage: UNK
     Route: 048
     Dates: start: 20081008
  6. DEPAKENE [Concomitant]
     Dosage: UNK
     Route: 048
     Dates: start: 20081115

REACTIONS (3)
  - CONVULSION [None]
  - DRUG INTERACTION [None]
  - NAUSEA [None]
